FAERS Safety Report 11184410 (Version 1)
Quarter: 2015Q2

REPORT INFORMATION
  Report Type: Spontaneous
  Country: US (occurrence: JP)
  Receive Date: 20150612
  Receipt Date: 20150612
  Transmission Date: 20150821
  Serious: Yes (Death, Hospitalization, Other)
  Sender: FDA-Public Use
  Company Number: US-CIPLA LTD.-2015JP04537

PATIENT

DRUGS (2)
  1. METOPROLOL [Suspect]
     Active Substance: METOPROLOL
     Indication: PRODUCT USED FOR UNKNOWN INDICATION
     Dosage: 50 MG, UNK
  2. DONEPEZIL [Suspect]
     Active Substance: DONEPEZIL
     Indication: PRODUCT USED FOR UNKNOWN INDICATION
     Dosage: 5 MG, UNK

REACTIONS (8)
  - Accidental overdose [Fatal]
  - Hypoglycaemia [Unknown]
  - Hypotension [Unknown]
  - Cardio-respiratory arrest [Fatal]
  - Bradycardia [Unknown]
  - Drug interaction [Fatal]
  - Confusional state [Unknown]
  - Loss of consciousness [Unknown]
